FAERS Safety Report 10195855 (Version 1)
Quarter: 2014Q2

REPORT INFORMATION
  Report Type: Spontaneous
  Country: US (occurrence: US)
  Receive Date: 20140527
  Receipt Date: 20140527
  Transmission Date: 20141212
  Serious: No
  Sender: FDA-Public Use
  Company Number: US-B.I. PHARMACEUTICALS,INC./RIDGEFIELD-2014-BI-21526BP

PATIENT
  Age: 61 Year
  Sex: Female
  Weight: 90.72 kg

DRUGS (2)
  1. MOBIC [Suspect]
     Indication: FIBROMYALGIA
     Dosage: 15 MG
     Route: 065
     Dates: start: 20140101
  2. METOPROLOL [Concomitant]
     Indication: HYPERTENSION
     Dosage: 50 MG
     Route: 048

REACTIONS (6)
  - Abdominal discomfort [Recovered/Resolved]
  - Hiccups [Recovered/Resolved]
  - Regurgitation [Recovered/Resolved]
  - Abdominal discomfort [Unknown]
  - Hiccups [Unknown]
  - Regurgitation [Recovered/Resolved]
